FAERS Safety Report 4424311-9 (Version None)
Quarter: 2004Q3

REPORT INFORMATION
  Report Type: 
  Country: None (occurrence: None)
  Receive Date: 20040715
  Receipt Date: 20040526
  Transmission Date: 20050211
  Serious: Yes (Hospitalization, Other)
  Sender: FDA-Public Use
  Company Number: 2004210095US

PATIENT
  Age: 49 Year
  Sex: Male

DRUGS (1)
  1. CELEBREX [Suspect]
     Indication: ARTHRALGIA
     Dosage: ORAL
     Route: 048
     Dates: start: 20040307

REACTIONS (3)
  - HAEMATEMESIS [None]
  - LIVER DISORDER [None]
  - RENAL DISORDER [None]
